FAERS Safety Report 16918006 (Version 1)
Quarter: 2019Q4

REPORT INFORMATION
  Report Type: Spontaneous
  Country: IT (occurrence: IT)
  Receive Date: 20191015
  Receipt Date: 20191015
  Transmission Date: 20200122
  Serious: Yes (Other)
  Sender: FDA-Public Use
  Company Number: IT-GLAXOSMITHKLINE-IT2019185566

PATIENT
  Age: 49 Year
  Sex: Female

DRUGS (1)
  1. ORAXIM [Suspect]
     Active Substance: CEFUROXIME AXETIL
     Indication: NASAL OPERATION
     Dosage: UNK
     Route: 065

REACTIONS (2)
  - Bronchostenosis [Recovering/Resolving]
  - Erythema [Recovering/Resolving]

NARRATIVE: CASE EVENT DATE: 20190401
